FAERS Safety Report 5031434-2 (Version None)
Quarter: 2006Q2

REPORT INFORMATION
  Report Type: 
  Country: None (occurrence: None)
  Receive Date: 20060504
  Receipt Date: 20060127
  Transmission Date: 20061013
  Serious: Yes (Other)
  Sender: FDA-Public Use
  Company Number: SGB1-2005-00554

PATIENT
  Age: 74 Year
  Sex: Female
  Weight: 44.5 kg

DRUGS (6)
  1. ANAGRELIDE HCL [Suspect]
     Indication: ESSENTIAL THROMBOCYTHAEMIA
     Dosage: 0.5 MG, 2X/DAY:BID,ORAL
     Route: 048
     Dates: start: 20051024, end: 20051128
  2. ASPIRIN [Concomitant]
  3. RAMIPRIL [Concomitant]
  4. FRUSEMIDE /00032601/ (FUROSEMIDE) [Concomitant]
  5. SIMVASTATIN [Concomitant]
  6. BISOPROLOL FUMARATE [Concomitant]

REACTIONS (3)
  - DEPRESSION [None]
  - FATIGUE [None]
  - LIVER FUNCTION TEST ABNORMAL [None]
